FAERS Safety Report 8520825 (Version 2)
Quarter: 2012Q4

REPORT INFORMATION
  Report Type: 
  Country: US (occurrence: US)
  Receive Date: 20120419
  Receipt Date: 20121120
  Transmission Date: 20130627
  Serious: No
  Sender: FDA-Public Use
  Company Number: US-ASTRAZENECA-2011SE64743

PATIENT
  Age: 61 Year
  Sex: Female
  Weight: 65.3 kg

DRUGS (5)
  1. NEXIUM [Suspect]
     Indication: IRRITABLE BOWEL SYNDROME
     Route: 048
  2. NEXIUM [Suspect]
     Indication: GASTRITIS
     Route: 048
  3. OMEPRAZOLE [Suspect]
     Route: 048
  4. PANTOPRAZOLE [Concomitant]
  5. LANTO [Concomitant]

REACTIONS (14)
  - Pancreatic disorder [Unknown]
  - Diabetes mellitus [Unknown]
  - Chronic obstructive pulmonary disease [Unknown]
  - Hypertension [Unknown]
  - Hyperlipidaemia [Unknown]
  - Hypothyroidism [Unknown]
  - Inflammation [Unknown]
  - Gastric disorder [Unknown]
  - Dyspepsia [Unknown]
  - Pain [Unknown]
  - Pharyngeal oedema [Unknown]
  - Drug prescribing error [Unknown]
  - Drug dose omission [Unknown]
  - Drug ineffective [Unknown]
